FAERS Safety Report 18147079 (Version 1)
Quarter: 2020Q3

REPORT INFORMATION
  Report Type: Spontaneous
  Country: US (occurrence: US)
  Receive Date: 20200813
  Receipt Date: 20200813
  Transmission Date: 20201103
  Serious: No
  Sender: FDA-Public Use
  Company Number: US-MAYNE PHARMA-2020MYN000341

PATIENT

DRUGS (1)
  1. CLONIDINE. [Suspect]
     Active Substance: CLONIDINE
     Indication: HYPERTENSION
     Dosage: 0.1 MG, WEEKLY
     Route: 062
     Dates: start: 202002, end: 202006

REACTIONS (6)
  - Skin weeping [Unknown]
  - Application site exfoliation [Unknown]
  - Skin burning sensation [Unknown]
  - Application site pain [Unknown]
  - Application site erythema [Unknown]
  - Application site discolouration [Unknown]

NARRATIVE: CASE EVENT DATE: 202005
